FAERS Safety Report 17088179 (Version 1)
Quarter: 2019Q4

REPORT INFORMATION
  Report Type: Spontaneous
  Country: JO (occurrence: JO)
  Receive Date: 20191128
  Receipt Date: 20191128
  Transmission Date: 20200122
  Serious: Yes (Other)
  Sender: FDA-Public Use
  Company Number: JO-CELLTRION INC.-2019JO026810

PATIENT

DRUGS (1)
  1. REMSIMA [Suspect]
     Active Substance: INFLIXIMAB
     Indication: COLITIS ULCERATIVE
     Dosage: 5 MG/KG, THREE DOSES (0, 2, 6 WEEKS)
     Route: 065

REACTIONS (2)
  - Hyperthyroidism [Unknown]
  - Dyspnoea [Unknown]
